FAERS Safety Report 8128369-5 (Version None)
Quarter: 2012Q1

REPORT INFORMATION
  Report Type: 
  Country: None (occurrence: None)
  Receive Date: 20120210
  Receipt Date: 20120127
  Transmission Date: 20120608
  Serious: Yes (Hospitalization)
  Sender: FDA-Public Use
  Company Number: US-ROCHE-1036684

PATIENT
  Sex: Male

DRUGS (2)
  1. VISMODEGIB [Suspect]
  2. VISMODEGIB [Suspect]
     Indication: BASAL CELL CARCINOMA
     Dosage: LAST DOSE PRIOR TO SAE: 28 NOV 2011
     Route: 048
     Dates: start: 20081009

REACTIONS (1)
  - NEOPLASM [None]
